FAERS Safety Report 17993502 (Version 1)
Quarter: 2020Q3

REPORT INFORMATION
  Report Type: Spontaneous
  Country: US (occurrence: US)
  Receive Date: 20200707
  Receipt Date: 20200707
  Transmission Date: 20201103
  Serious: Yes (Hospitalization)
  Sender: FDA-Public Use
  Company Number: None

PATIENT
  Age: 63 Year
  Sex: Male

DRUGS (11)
  1. ESBRIET [Suspect]
     Active Substance: PIRFENIDONE
     Indication: IDIOPATHIC PULMONARY FIBROSIS
     Dosage: ?          OTHER DOSE:3 TABS;?
     Route: 048
  2. TRAMADOL HCL [Suspect]
     Active Substance: TRAMADOL HYDROCHLORIDE
  3. HYDROCO/APAP [Suspect]
     Active Substance: ACETAMINOPHEN\HYDROCODONE
  4. VIRTUSSIN AC [Suspect]
     Active Substance: CODEINE PHOSPHATE\GUAIFENESIN
  5. AMLODIPINE [Suspect]
     Active Substance: AMLODIPINE BESYLATE
  6. FLUTICASONE. [Suspect]
     Active Substance: FLUTICASONE
  7. TEMAZEPAM. [Suspect]
     Active Substance: TEMAZEPAM
  8. VENTOLIN HFA [Suspect]
     Active Substance: ALBUTEROL SULFATE
  9. CLINDAMYCIN. [Suspect]
     Active Substance: CLINDAMYCIN
  10. LIDOCANE [Suspect]
     Active Substance: LIDOCAINE
  11. METFORMIN [Suspect]
     Active Substance: METFORMIN HYDROCHLORIDE

REACTIONS (2)
  - Hypophagia [None]
  - Therapy interrupted [None]

NARRATIVE: CASE EVENT DATE: 20190628
